FAERS Safety Report 17091553 (Version 1)
Quarter: 2019Q4

REPORT INFORMATION
  Report Type: Spontaneous
  Country: US (occurrence: US)
  Receive Date: 20191129
  Receipt Date: 20191129
  Transmission Date: 20200122
  Serious: Yes (Hospitalization)
  Sender: FDA-Public Use
  Company Number: US-SUNOVION-2019SUN005124

PATIENT
  Age: 62 Year
  Sex: Female

DRUGS (4)
  1. YUPELRI [Concomitant]
     Active Substance: REVEFENACIN
     Indication: ASTHMA
  2. BROVANA [Suspect]
     Active Substance: ARFORMOTEROL TARTRATE
     Indication: CHRONIC OBSTRUCTIVE PULMONARY DISEASE
     Dosage: 15 ?G/2ML, BID
     Route: 055
     Dates: end: 20191031
  3. YUPELRI [Concomitant]
     Active Substance: REVEFENACIN
     Indication: CHRONIC OBSTRUCTIVE PULMONARY DISEASE
     Dosage: UNK DOSAGE, ONCE DAILY, AM
     Route: 055
  4. BROVANA [Suspect]
     Active Substance: ARFORMOTEROL TARTRATE
     Indication: ASTHMA

REACTIONS (4)
  - Malaise [Unknown]
  - Off label use [Unknown]
  - Dyspnoea [Unknown]
  - Therapy cessation [Unknown]

NARRATIVE: CASE EVENT DATE: 20191031
